FAERS Safety Report 7732157-9 (Version None)
Quarter: 2011Q3

REPORT INFORMATION
  Report Type: 
  Country: None (occurrence: None)
  Receive Date: 20110906
  Receipt Date: 20110901
  Transmission Date: 20111222
  Serious: Yes (Other)
  Sender: FDA-Public Use
  Company Number: US-PFIZER INC-2011205665

PATIENT
  Sex: Male

DRUGS (4)
  1. VICODIN [Concomitant]
     Dosage: UNK
     Route: 048
  2. XANAX [Suspect]
     Indication: ANXIETY
     Dosage: 2 MG, UNK
     Route: 048
     Dates: start: 20110101
  3. NORCO [Concomitant]
     Dosage: UNK
     Route: 048
  4. XANAX [Suspect]
     Indication: PANIC REACTION
     Dosage: 1 MG, UNK
     Route: 048
     Dates: start: 20110101, end: 20110101

REACTIONS (2)
  - DRUG ABUSE [None]
  - DRUG DEPENDENCE [None]
